FAERS Safety Report 11458723 (Version 1)
Quarter: 2015Q3

REPORT INFORMATION
  Report Type: Spontaneous
  Country: US (occurrence: None)
  Receive Date: 20150903
  Receipt Date: 20150903
  Transmission Date: 20151125
  Serious: Yes (Other)
  Sender: FDA-Public Use
  Company Number: None

PATIENT
  Age: 58 Year
  Sex: Female
  Weight: 97.52 kg

DRUGS (2)
  1. BABY ASA TRAVANTAN FOR EYES [Concomitant]
  2. BELVIQ [Suspect]
     Active Substance: LORCASERIN HYDROCHLORIDE
     Indication: WEIGHT LOSS DIET
     Dosage: 1 PILL
     Route: 048

REACTIONS (1)
  - Ventricular extrasystoles [None]

NARRATIVE: CASE EVENT DATE: 20150811
